FAERS Safety Report 7339888-3 (Version None)
Quarter: 2011Q1

REPORT INFORMATION
  Report Type: 
  Country: None (occurrence: None)
  Receive Date: 20110228
  Receipt Date: 20110214
  Transmission Date: 20110831
  Serious: Yes (Other)
  Sender: FDA-Public Use
  Company Number: 011497

PATIENT
  Sex: Female
  Weight: 72 kg

DRUGS (3)
  1. FOLIC ACID [Concomitant]
  2. FEMIBION [Concomitant]
  3. KEPPRA [Suspect]
     Indication: EPILEPSY
     Dosage: (1000 MG, MONOTHERAPEUTIC REGIME), 250 MG BID, ORAL
     Route: 048
     Dates: start: 20090201

REACTIONS (6)
  - EPILEPSY [None]
  - DRUG EXPOSURE DURING PREGNANCY [None]
  - PREGNANCY [None]
  - CAESAREAN SECTION [None]
  - STRESS [None]
  - INSOMNIA [None]
